FAERS Safety Report 6313328-5 (Version None)
Quarter: 2009Q3

REPORT INFORMATION
  Report Type: 
  Country: None (occurrence: None)
  Receive Date: 20090818
  Receipt Date: 20090811
  Transmission Date: 20100115
  Serious: Yes (Hospitalization)
  Sender: FDA-Public Use
  Company Number: B0584187A

PATIENT
  Sex: Female

DRUGS (4)
  1. ARIXTRA [Suspect]
     Indication: THROMBOSIS PROPHYLAXIS
     Dosage: 2.5MG PER DAY
     Route: 058
     Dates: start: 20090627, end: 20090702
  2. PANTOL [Concomitant]
     Indication: GASTROINTESTINAL HYPOMOTILITY
     Dosage: 500MG PER DAY
     Dates: start: 20090625
  3. VITAMEDIN [Concomitant]
     Indication: VITAMIN SUPPLEMENTATION
     Route: 042
     Dates: start: 20090625
  4. VITACIMIN [Concomitant]
     Indication: VITAMIN SUPPLEMENTATION
     Dosage: 500MG PER DAY
     Route: 042
     Dates: start: 20090625

REACTIONS (3)
  - ABDOMINAL PAIN [None]
  - BLOOD PRESSURE DECREASED [None]
  - SPLENIC HAEMORRHAGE [None]
